FAERS Safety Report 11349734 (Version 1)
Quarter: 2015Q3

REPORT INFORMATION
  Report Type: Spontaneous
  Country: CA (occurrence: CA)
  Receive Date: 20150807
  Receipt Date: 20150807
  Transmission Date: 20151125
  Serious: Yes (Disabling)
  Sender: FDA-Public Use
  Company Number: CA-TEVA-584432ACC

PATIENT
  Age: 67 Year
  Sex: Male
  Weight: 140.74 kg

DRUGS (7)
  1. PROSCAR [Concomitant]
     Active Substance: FINASTERIDE
     Route: 065
  2. ADALAT XL - SRT [Concomitant]
     Route: 065
  3. LOZIDE [Concomitant]
     Active Substance: INDAPAMIDE
     Route: 065
  4. ZESTRIL [Concomitant]
     Active Substance: LISINOPRIL
     Route: 065
  5. TYLENOL WITH CODEINE [Concomitant]
     Active Substance: ACETAMINOPHEN\CODEINE PHOSPHATE
     Route: 065
  6. TAMSULOSIN [Suspect]
     Active Substance: TAMSULOSIN
     Indication: PROSTATIC DISORDER
     Dosage: .4 MILLIGRAM DAILY;
     Route: 048
  7. VENTOLIN [Concomitant]
     Active Substance: ALBUTEROL SULFATE
     Route: 065

REACTIONS (1)
  - Pain in extremity [Recovered/Resolved]
